FAERS Safety Report 4548128-X (Version None)
Quarter: 2004Q4

REPORT INFORMATION
  Report Type: 
  Country: None (occurrence: None)
  Receive Date: 20041220
  Receipt Date: 20040923
  Transmission Date: 20050328
  Serious: Yes (Other)
  Sender: FDA-Public Use
  Company Number: 2004074154

PATIENT
  Age: 61 Year
  Sex: Female
  Weight: 95 kg

DRUGS (13)
  1. VFEND [Suspect]
     Indication: BRONCHOPULMONARY ASPERGILLOSIS
     Dosage: 600 MG (300 MG, 2 IN 1 D), ORAL
     Route: 048
     Dates: start: 20040101
  2. MYCOPHENOLATE SODIUM (MYCOPHENOLIC ACID SODIUM SALT) [Concomitant]
  3. PREDNISONE [Concomitant]
  4. GABAPENTIN [Concomitant]
  5. PANTOPRAZOLE (PANTOPRAZOLE) [Concomitant]
  6. MONTELUKAST (MONTELUKAST) [Concomitant]
  7. LORATADINE [Concomitant]
  8. ZOLPIDEM TARTRATE [Concomitant]
  9. METRONIDAZOLE [Concomitant]
  10. ALLOPURINOL [Concomitant]
  11. WARFARIN (WARFARIN) [Concomitant]
  12. MESALAMINE [Concomitant]
  13. TACROLIMUS (TACROLIMUS) [Concomitant]

REACTIONS (2)
  - ASPARTATE AMINOTRANSFERASE INCREASED [None]
  - BLOOD ALKALINE PHOSPHATASE [None]
